FAERS Safety Report 4950970-8 (Version None)
Quarter: 2006Q1

REPORT INFORMATION
  Report Type: 
  Country: None (occurrence: None)
  Receive Date: 20060316
  Receipt Date: 20060227
  Transmission Date: 20060701
  Serious: Yes (Hospitalization)
  Sender: FDA-Public Use
  Company Number: FR200603000006

PATIENT
  Age: 78 Year
  Sex: Female

DRUGS (7)
  1. PROZAC [Suspect]
     Dosage: ORAL
     Route: 048
  2. PROPRANOLOL [Concomitant]
  3. XANAX /USA/ (ALPRAZOLAM) [Concomitant]
  4. NOCTRAN 10 (ACEPROMAZINE, ACEPROMETAZINE, CLORAZEPATE DIPOTASSIUM) [Concomitant]
  5. SIBELIUM (FLUNARIZINE DIHYDROCHLORIDE) [Concomitant]
  6. LUDIOMIL /SCH/ (MAPROTILINE HYDROCHLORIDE) [Concomitant]
  7. SERC [Concomitant]

REACTIONS (3)
  - DRUG INTERACTION [None]
  - FALL [None]
  - WEIGHT DECREASED [None]
